FAERS Safety Report 7973569-8 (Version None)
Quarter: 2011Q4

REPORT INFORMATION
  Report Type: 
  Country: None (occurrence: None)
  Receive Date: 20111202
  Receipt Date: 20111122
  Transmission Date: 20120403
  Serious: Yes (Hospitalization)
  Sender: FDA-Public Use
  Company Number: 2011SP049672

PATIENT
  Age: 27 Year
  Sex: Female

DRUGS (2)
  1. ORTHO-CEPT [Suspect]
     Dosage: QD; PO
     Route: 048
     Dates: start: 20100201
  2. DESOGESTREL (DESOGESTREL /00754001/) [Suspect]
     Indication: ORAL CONTRACEPTION
     Dosage: 30 MCG; PO
     Route: 048
     Dates: start: 20100201, end: 20110927

REACTIONS (5)
  - RIGHT VENTRICULAR FAILURE [None]
  - SYNCOPE [None]
  - PAIN IN EXTREMITY [None]
  - PULMONARY HYPERTENSION [None]
  - PULMONARY EMBOLISM [None]
